FAERS Safety Report 7526031-0 (Version None)
Quarter: 2011Q2

REPORT INFORMATION
  Report Type: 
  Country: None (occurrence: None)
  Receive Date: 20110526
  Receipt Date: 20110513
  Transmission Date: 20111010
  Serious: Yes (Hospitalization, Other)
  Sender: FDA-Public Use
  Company Number: 2011AP000987

PATIENT
  Age: 25 Year
  Sex: Female

DRUGS (2)
  1. SERTRALINE HYDROCHLORIDE [Suspect]
     Indication: AFFECTIVE DISORDER
     Dosage: 50 MG;PO
     Route: 048
     Dates: start: 20101222, end: 20110329
  2. SEROQUEL [Suspect]
     Indication: AFFECTIVE DISORDER
     Dosage: 50 MG;PO
     Route: 048
     Dates: end: 20110329

REACTIONS (5)
  - ECTOPIC PREGNANCY [None]
  - DRUG EXPOSURE DURING PREGNANCY [None]
  - PREMATURE DELIVERY [None]
  - ABDOMINAL PAIN LOWER [None]
  - STILLBIRTH [None]
